FAERS Safety Report 8730378 (Version 2)
Quarter: 2012Q4

REPORT INFORMATION
  Report Type: 
  Country: GB (occurrence: GB)
  Receive Date: 20120817
  Receipt Date: 20120905
  Transmission Date: 20130627
  Serious: Yes (Life-Threatening)
  Sender: FDA-Public Use
  Company Number: PHHY2012GB070536

PATIENT
  Age: 82 Year
  Sex: Female
  Weight: 57.15 kg

DRUGS (14)
  1. RAMIPRIL [Suspect]
     Dates: start: 20120521
  2. LITHIUM [Interacting]
  3. AMLODIPINE [Concomitant]
     Dates: start: 20120420
  4. BENDROFLUMETHIAZIDE [Concomitant]
     Dates: start: 20120420
  5. DIAZEPAM [Concomitant]
     Dates: start: 20120709, end: 20120714
  6. LEVOTHYROXINE [Concomitant]
     Dates: start: 20120420
  7. LOFEPRAMINE [Concomitant]
     Dates: start: 20061121
  8. OLANZAPINE [Concomitant]
     Dates: start: 20061121
  9. PRIADEL [Concomitant]
     Dates: start: 20120518, end: 20120519
  10. PRIADEL [Concomitant]
     Dates: start: 20120618, end: 20120619
  11. PRIADEL [Concomitant]
     Dates: start: 20120713, end: 20120714
  12. SYMBICORT [Concomitant]
     Dates: start: 20120618, end: 20120624
  13. SYMBICORT [Concomitant]
     Dates: start: 20120713, end: 20120719
  14. ZOPICLONE [Concomitant]
     Dates: start: 20061121

REACTIONS (3)
  - Glomerular filtration rate decreased [Unknown]
  - Drug level increased [Recovering/Resolving]
  - Drug interaction [Unknown]
